FAERS Safety Report 5351138-6 (Version None)
Quarter: 2007Q2

REPORT INFORMATION
  Report Type: 
  Country: None (occurrence: None)
  Receive Date: 20070608
  Receipt Date: 20070530
  Transmission Date: 20071010
  Serious: Yes (Other)
  Sender: FDA-Public Use
  Company Number: SE-PFIZER INC-2007042065

PATIENT
  Age: 41 Year
  Sex: Female

DRUGS (4)
  1. ZOLOFT [Suspect]
     Indication: DEPRESSION
     Route: 048
  2. ZOLOFT [Suspect]
     Indication: FATIGUE
  3. ZOLPIDEM [Concomitant]
  4. DULOXETINE [Concomitant]

REACTIONS (2)
  - PLATELET COUNT INCREASED [None]
  - STREPTOCOCCAL INFECTION [None]
